FAERS Safety Report 25010475 (Version 1)
Quarter: 2025Q1

REPORT INFORMATION
  Report Type: Spontaneous
  Country: KR (occurrence: KR)
  Receive Date: 20250225
  Receipt Date: 20250225
  Transmission Date: 20250408
  Serious: Yes (Other)
  Sender: BIOXCEL
  Company Number: KR-BIOXCEL THERAPEUTICS, INC.-2025BIX00001

PATIENT
  Age: 5 Decade
  Sex: Male

DRUGS (2)
  1. DEXMEDETOMIDINE [Suspect]
     Active Substance: DEXMEDETOMIDINE
     Indication: Sedation
     Dates: start: 20230715, end: 20230716
  2. REMIFENTANIL [Concomitant]
     Active Substance: REMIFENTANIL
     Indication: Sedation
     Dates: start: 202307, end: 202307

REACTIONS (2)
  - Hypothermia [Recovered/Resolved]
  - Bradycardia [Recovered/Resolved]

NARRATIVE: CASE EVENT DATE: 20230716
